FAERS Safety Report 5748883-7 (Version None)
Quarter: 2008Q2

REPORT INFORMATION
  Report Type: 
  Country: None (occurrence: None)
  Receive Date: 20080522
  Receipt Date: 20080512
  Transmission Date: 20081010
  Serious: Yes (Other)
  Sender: FDA-Public Use
  Company Number: US-JNJFOC-20080500851

PATIENT
  Weight: 73.0291 kg

DRUGS (8)
  1. DACOGEN [Suspect]
     Indication: MYELODYSPLASTIC SYNDROME
     Dosage: 27.3 MG, INTRAVENOUS
     Route: 042
     Dates: start: 20080430, end: 20080503
  2. NEXIUM [Concomitant]
  3. METFORMIN HCL [Concomitant]
  4. DECADRON [Concomitant]
  5. KYTRIL [Concomitant]
  6. PROCRIT [Concomitant]
  7. DILANTIN KAPSEAL [Concomitant]
  8. NEULASTA (FILGRASTIM) [Concomitant]

REACTIONS (5)
  - ALANINE AMINOTRANSFERASE INCREASED [None]
  - ASPARTATE AMINOTRANSFERASE INCREASED [None]
  - BLOOD ALKALINE PHOSPHATASE INCREASED [None]
  - BLOOD BILIRUBIN INCREASED [None]
  - HEPATIC ENZYME INCREASED [None]
